FAERS Safety Report 5599982-4 (Version None)
Quarter: 2008Q1

REPORT INFORMATION
  Report Type: 
  Country: None (occurrence: None)
  Receive Date: 20080118
  Receipt Date: 20080109
  Transmission Date: 20080703
  Serious: Yes (Hospitalization)
  Sender: FDA-Public Use
  Company Number: TPA2008A00053

PATIENT
  Age: 16 Year
  Sex: Female
  Weight: 71.4415 kg

DRUGS (5)
  1. ROZEREM [Suspect]
     Indication: INITIAL INSOMNIA
     Dosage: 8 MG, ONCE, HS, PER ORAL
     Route: 048
     Dates: start: 20071101, end: 20071101
  2. ROZEREM [Suspect]
     Indication: MIDDLE INSOMNIA
     Dosage: 8 MG, ONCE, HS, PER ORAL
     Route: 048
     Dates: start: 20071101, end: 20071101
  3. KLONOPIN [Concomitant]
  4. BENADRYL [Concomitant]
  5. UNKNOWN MEDICATIONS (ALL OTHER THERAPEUTIC PRODUCTS) [Concomitant]

REACTIONS (7)
  - ANXIETY [None]
  - DEPRESSION [None]
  - DYSSOMNIA [None]
  - HALLUCINATION [None]
  - INITIAL INSOMNIA [None]
  - MIDDLE INSOMNIA [None]
  - THINKING ABNORMAL [None]
